FAERS Safety Report 16887458 (Version 1)
Quarter: 2019Q4

REPORT INFORMATION
  Report Type: Spontaneous
  Country: US (occurrence: US)
  Receive Date: 20191004
  Receipt Date: 20191004
  Transmission Date: 20200122
  Serious: Yes (Hospitalization, Other)
  Sender: FDA-Public Use
  Company Number: US-AUROBINDO-AUR-APL-2019-063956

PATIENT
  Age: 39 Year
  Sex: Female
  Weight: 67 kg

DRUGS (8)
  1. ROPIVACAINE. [Concomitant]
     Active Substance: ROPIVACAINE HYDROCHLORIDE
     Indication: EPIDURAL ANALGESIA
     Dosage: 6 MILLILITER, EVERY HOUR
     Route: 008
  2. ROPIVACAINE. [Concomitant]
     Active Substance: ROPIVACAINE HYDROCHLORIDE
     Dosage: 3 MILLILITER (BOLUS DOSE OF 3 ML WITH A 20 MINUTE LOCKOUT )
     Route: 008
  3. FENTANYL. [Concomitant]
     Active Substance: FENTANYL
     Indication: EPIDURAL ANALGESIA
     Dosage: 3 MILLILITER (BOLUS DOSE OF 3 ML WITH A 20 MINUTE LOCKOUT )
     Route: 008
  4. LIDOCAINE. [Suspect]
     Active Substance: LIDOCAINE
     Indication: PRODUCT USED FOR UNKNOWN INDICATION
     Dosage: 3 MILLILITER (A TEST DOSE OF 3 MILLILITERS (ML) LIDOCAINE 1.5% WITH EPINEPHRINE 1:200,000 )
     Route: 008
  5. FENTANYL. [Concomitant]
     Active Substance: FENTANYL
     Dosage: 20 MICROGRAM
     Route: 037
  6. ROPIVACAINE. [Concomitant]
     Active Substance: ROPIVACAINE HYDROCHLORIDE
     Dosage: 7 MILLILITER (BOLUS )
     Route: 008
  7. LIDOCAINE HYDROCHLORIDE INJECTION USP 1%(10 MG/ML) [Suspect]
     Active Substance: LIDOCAINE HYDROCHLORIDE
     Indication: LOCAL ANAESTHESIA
     Dosage: 5 MILLILITER
     Route: 008
  8. FENTANYL. [Concomitant]
     Active Substance: FENTANYL
     Dosage: 6 MILLILITER, EVERY HOUR
     Route: 008

REACTIONS (2)
  - Horner^s syndrome [Recovered/Resolved]
  - Nerve block [Recovered/Resolved]
